FAERS Safety Report 8290747 (Version 4)
Quarter: 2012Q4

REPORT INFORMATION
  Report Type: Report from Study
  Country: JP (occurrence: JP)
  Receive Date: 20111214
  Receipt Date: 20120829
  Transmission Date: 20130627
  Serious: Yes (Death, Hospitalization)
  Sender: FDA-Public Use
  Company Number: JP-EISAI INC-E7389-01644-SPO-JP

PATIENT
  Age: 59 Year
  Sex: Female
  Weight: 71 kg

DRUGS (18)
  1. HALAVEN [Suspect]
     Indication: BREAST CANCER RECURRENT
     Route: 041
     Dates: start: 20111004, end: 20111011
  2. HALAVEN [Suspect]
     Indication: METASTASES TO LIVER
  3. HALAVEN [Suspect]
     Indication: METASTASES TO LUNG
  4. HALAVEN [Suspect]
     Indication: PLEURAL DISORDER
  5. HALAVEN [Suspect]
     Indication: METASTASES TO BONE
  6. FEMARA [Concomitant]
     Indication: BREAST CANCER RECURRENT
     Dosage: UNKNOWN
     Route: 065
     Dates: start: 200808, end: 20111023
  7. FEMARA [Concomitant]
     Indication: METASTASES TO LIVER
  8. FEMARA [Concomitant]
     Indication: METASTASES TO LUNG
  9. FEMARA [Concomitant]
     Indication: PLEURAL DISORDER
  10. FEMARA [Concomitant]
     Indication: METASTASES TO BONE
  11. LIPITOR [Concomitant]
     Dosage: UNKNOWN
     Route: 048
  12. TAKEPRON [Concomitant]
     Dosage: UNKNOWN
     Route: 048
  13. LOXONIN [Concomitant]
     Dosage: UNKNOWN
     Route: 048
  14. MUCOSTA [Concomitant]
     Dosage: UNKNOWN
     Route: 048
  15. BROTIZOLAM [Concomitant]
     Dosage: UNKNOWN
     Route: 048
  16. DEXART [Concomitant]
     Dosage: UNKNOWN
     Route: 041
  17. ZANTAC [Concomitant]
     Dosage: UNKNOWN
     Route: 041
  18. GRANISETRON [Concomitant]
     Dosage: UNKNOWN
     Route: 041

REACTIONS (5)
  - Metastases to liver [Fatal]
  - Thrombocytopenia [Not Recovered/Not Resolved]
  - Neutropenia [Recovered/Resolved]
  - Bone marrow failure [None]
  - Condition aggravated [None]
